FAERS Safety Report 21285845 (Version 1)
Quarter: 2022Q3

REPORT INFORMATION
  Report Type: Report from Study
  Country: KR (occurrence: None)
  Receive Date: 20220902
  Receipt Date: 20220902
  Transmission Date: 20221026
  Serious: Yes (Life-Threatening, Hospitalization, Other)
  Sender: FDA-Public Use
  Company Number: 2020SE83972

PATIENT
  Age: 28647 Day
  Sex: Male

DRUGS (39)
  1. OSIMERTINIB [Suspect]
     Active Substance: OSIMERTINIB
     Indication: EGFR gene mutation
     Route: 048
     Dates: start: 20200617, end: 20200630
  2. OSIMERTINIB [Suspect]
     Active Substance: OSIMERTINIB
     Indication: Non-small cell lung cancer
     Route: 048
     Dates: start: 20200617, end: 20200630
  3. OSIMERTINIB [Suspect]
     Active Substance: OSIMERTINIB
     Indication: EGFR gene mutation
     Route: 048
     Dates: start: 20200701, end: 20200727
  4. OSIMERTINIB [Suspect]
     Active Substance: OSIMERTINIB
     Indication: Non-small cell lung cancer
     Route: 048
     Dates: start: 20200701, end: 20200727
  5. OSIMERTINIB [Suspect]
     Active Substance: OSIMERTINIB
     Indication: EGFR gene mutation
     Route: 048
     Dates: start: 20200728, end: 20200817
  6. OSIMERTINIB [Suspect]
     Active Substance: OSIMERTINIB
     Indication: Non-small cell lung cancer
     Route: 048
     Dates: start: 20200728, end: 20200817
  7. OSIMERTINIB [Suspect]
     Active Substance: OSIMERTINIB
     Indication: EGFR gene mutation
     Route: 048
     Dates: start: 20200818, end: 20200907
  8. OSIMERTINIB [Suspect]
     Active Substance: OSIMERTINIB
     Indication: Non-small cell lung cancer
     Route: 048
     Dates: start: 20200818, end: 20200907
  9. OSIMERTINIB [Suspect]
     Active Substance: OSIMERTINIB
     Indication: EGFR gene mutation
     Route: 048
     Dates: start: 20200908, end: 20200928
  10. OSIMERTINIB [Suspect]
     Active Substance: OSIMERTINIB
     Indication: Non-small cell lung cancer
     Route: 048
     Dates: start: 20200908, end: 20200928
  11. OSIMERTINIB [Suspect]
     Active Substance: OSIMERTINIB
     Indication: EGFR gene mutation
     Route: 048
     Dates: start: 20200929, end: 20201019
  12. OSIMERTINIB [Suspect]
     Active Substance: OSIMERTINIB
     Indication: Non-small cell lung cancer
     Route: 048
     Dates: start: 20200929, end: 20201019
  13. OSIMERTINIB [Suspect]
     Active Substance: OSIMERTINIB
     Indication: EGFR gene mutation
     Route: 048
     Dates: start: 20201020, end: 20201109
  14. OSIMERTINIB [Suspect]
     Active Substance: OSIMERTINIB
     Indication: Non-small cell lung cancer
     Route: 048
     Dates: start: 20201020, end: 20201109
  15. OSIMERTINIB [Suspect]
     Active Substance: OSIMERTINIB
     Indication: EGFR gene mutation
     Route: 048
     Dates: start: 20201110, end: 20201221
  16. OSIMERTINIB [Suspect]
     Active Substance: OSIMERTINIB
     Indication: Non-small cell lung cancer
     Route: 048
     Dates: start: 20201110, end: 20201221
  17. OSIMERTINIB [Suspect]
     Active Substance: OSIMERTINIB
     Indication: EGFR gene mutation
     Route: 048
     Dates: start: 20201222, end: 20210201
  18. OSIMERTINIB [Suspect]
     Active Substance: OSIMERTINIB
     Indication: Non-small cell lung cancer
     Route: 048
     Dates: start: 20201222, end: 20210201
  19. CARBOPLATIN [Suspect]
     Active Substance: CARBOPLATIN
     Indication: EGFR gene mutation
     Dosage: 5 AUC EVERY THREE WEEKS
     Route: 042
     Dates: start: 20200617, end: 20200617
  20. CARBOPLATIN [Suspect]
     Active Substance: CARBOPLATIN
     Indication: Non-small cell lung cancer
     Dosage: 5 AUC EVERY THREE WEEKS
     Route: 042
     Dates: start: 20200617, end: 20200617
  21. PEMETREXED [Suspect]
     Active Substance: PEMETREXED
     Indication: EGFR gene mutation
     Route: 042
     Dates: start: 20200617, end: 20200617
  22. PEMETREXED [Suspect]
     Active Substance: PEMETREXED
     Indication: Non-small cell lung cancer
     Route: 042
     Dates: start: 20200617, end: 20200617
  23. MOXIFLOXACIN [Concomitant]
     Active Substance: MOXIFLOXACIN
     Indication: Prophylaxis
     Route: 048
     Dates: start: 20200529, end: 20200603
  24. ACETAMINOPHEN [Concomitant]
     Active Substance: ACETAMINOPHEN
     Indication: Headache
     Dosage: 650.0MG AS REQUIRED
     Route: 048
     Dates: start: 20200529
  25. ACETAMINOPHEN [Concomitant]
     Active Substance: ACETAMINOPHEN
     Indication: Pyrexia
     Dosage: 650.0MG AS REQUIRED
     Route: 048
     Dates: start: 20200529
  26. ACETAMINOPHEN [Concomitant]
     Active Substance: ACETAMINOPHEN
     Indication: Prophylaxis
     Dosage: 650.0MG AS REQUIRED
     Route: 048
     Dates: start: 20200529
  27. ACETAMINOPHEN [Concomitant]
     Active Substance: ACETAMINOPHEN
     Indication: Headache
     Dosage: 100.0ML AS REQUIRED
     Route: 042
     Dates: start: 20200702, end: 20200703
  28. ACETAMINOPHEN [Concomitant]
     Active Substance: ACETAMINOPHEN
     Indication: Pyrexia
     Dosage: 100.0ML AS REQUIRED
     Route: 042
     Dates: start: 20200702, end: 20200703
  29. ACETAMINOPHEN [Concomitant]
     Active Substance: ACETAMINOPHEN
     Indication: Prophylaxis
     Dosage: 100.0ML AS REQUIRED
     Route: 042
     Dates: start: 20200702, end: 20200703
  30. MAGNESIUM SULFATE [Concomitant]
     Active Substance: MAGNESIUM SULFATE
     Indication: Acute kidney injury
     Dosage: 20.0ML ONCE/SINGLE ADMINISTRATION
     Route: 042
     Dates: start: 20200701, end: 20200701
  31. DILTIAZEM [Concomitant]
     Active Substance: DILTIAZEM
     Indication: Angina pectoris
     Route: 042
     Dates: start: 20200701, end: 20200703
  32. CALCIUM GLUCONATE [Concomitant]
     Active Substance: CALCIUM GLUCONATE
     Indication: Acute kidney injury
     Dosage: 20.0ML ONCE/SINGLE ADMINISTRATION
     Route: 042
     Dates: start: 20200702, end: 20200702
  33. TETRACOSACTRIN [Concomitant]
     Indication: Adrenal disorder
     Dosage: 1.0ML ONCE/SINGLE ADMINISTRATION
     Route: 042
     Dates: start: 20200702, end: 20200702
  34. PHOSTEN [Concomitant]
     Indication: Acute kidney injury
     Dosage: 20.0ML ONCE/SINGLE ADMINISTRATION
     Route: 042
     Dates: start: 20200702, end: 20200702
  35. FUROSEMIDE [Concomitant]
     Active Substance: FUROSEMIDE
     Indication: Acute kidney injury
     Dosage: 2.0ML AS REQUIRED
     Route: 042
     Dates: start: 20200702, end: 20200704
  36. CEFTRIAXONE KIT [Concomitant]
     Indication: Infection prophylaxis
     Route: 042
     Dates: start: 20200703, end: 20200703
  37. AMIODARONE [Concomitant]
     Active Substance: AMIODARONE
     Indication: Atrial fibrillation
     Route: 042
     Dates: start: 20200703, end: 20200704
  38. AMIODARONE [Concomitant]
     Active Substance: AMIODARONE
     Indication: Arrhythmia prophylaxis
     Route: 042
     Dates: start: 20200703, end: 20200704
  39. APIXABAN [Concomitant]
     Active Substance: APIXABAN
     Indication: Prophylaxis
     Route: 048
     Dates: start: 20200703, end: 20200706

REACTIONS (3)
  - Decreased appetite [Not Recovered/Not Resolved]
  - Ischaemic stroke [Recovering/Resolving]
  - Cardiac arrest [Recovered/Resolved]

NARRATIVE: CASE EVENT DATE: 20200621
